FAERS Safety Report 10470988 (Version 2)
Quarter: 2015Q1

REPORT INFORMATION
  Report Type: Spontaneous
  Country: US (occurrence: US)
  Receive Date: 20140923
  Receipt Date: 20150227
  Transmission Date: 20150720
  Serious: Yes (Death, Hospitalization, Disabling, Other)
  Sender: FDA-Public Use
  Company Number: US-009507513-1409USA010745

PATIENT
  Sex: Male
  Weight: 136.5 kg

DRUGS (1)
  1. JANUVIA [Suspect]
     Active Substance: SITAGLIPTIN PHOSPHATE
     Indication: TYPE 2 DIABETES MELLITUS
     Dosage: 100 MG, QD
     Route: 048
     Dates: start: 20061208, end: 20100225

REACTIONS (3)
  - Pancreatic carcinoma [Fatal]
  - Disability [Unknown]
  - Ascites [Unknown]

NARRATIVE: CASE EVENT DATE: 2009
